FAERS Safety Report 5872176-0 (Version None)
Quarter: 2008Q3

REPORT INFORMATION
  Report Type: 
  Country: None (occurrence: None)
  Receive Date: 20080905
  Receipt Date: 20080828
  Transmission Date: 20090109
  Serious: Yes (Other)
  Sender: FDA-Public Use
  Company Number: US-ABBOTT-08P-163-0473032-00

PATIENT
  Sex: Female
  Weight: 60.382 kg

DRUGS (8)
  1. SYNTHROID [Suspect]
     Indication: THYROID DISORDER
     Route: 048
     Dates: start: 20080701, end: 20080814
  2. SYNTHROID [Suspect]
     Route: 048
     Dates: start: 20080814
  3. PROPRANOLOL [Concomitant]
     Indication: HYPERTENSION
     Route: 048
  4. GABAPENTIN [Concomitant]
     Indication: NEURALGIA
     Route: 048
  5. ANTIHISTAMINES [Concomitant]
     Indication: SEASONAL ALLERGY
     Route: 048
  6. PROVELLA-14 [Concomitant]
     Indication: HORMONE REPLACEMENT THERAPY
     Route: 048
  7. DIAZEPAM [Concomitant]
     Indication: MUSCLE RELAXANT THERAPY
     Route: 048
  8. TEMAZEPAM [Concomitant]
     Indication: INSOMNIA
     Route: 048

REACTIONS (3)
  - ABDOMINAL PAIN UPPER [None]
  - ALOPECIA [None]
  - MEDICAL DEVICE PAIN [None]
